FAERS Safety Report 6427146-0 (Version None)
Quarter: 2009Q4

REPORT INFORMATION
  Report Type: 
  Country: None (occurrence: None)
  Receive Date: 20091104
  Receipt Date: 20091021
  Transmission Date: 20100525
  Serious: Yes (Other)
  Sender: FDA-Public Use
  Company Number: CN-PFIZER INC-2009287422

PATIENT
  Age: 51 Year
  Sex: Female

DRUGS (4)
  1. VORICONAZOLE [Suspect]
     Dosage: 0.2 G, 2X/DAY
     Route: 041
  2. FAT EMULSIONS [Concomitant]
  3. AMBROXOL [Concomitant]
  4. AMINO ACIDS [Concomitant]

REACTIONS (1)
  - BONE MARROW FAILURE [None]
